FAERS Safety Report 5551626-3 (Version None)
Quarter: 2007Q4

REPORT INFORMATION
  Report Type: 
  Country: None (occurrence: None)
  Receive Date: 20071129
  Receipt Date: 20061130
  Transmission Date: 20080405
  Serious: Yes (Other)
  Sender: FDA-Public Use
  Company Number: PHEH2006US12450

PATIENT
  Age: 60 Year
  Sex: Male
  Weight: 77.1 kg

DRUGS (3)
  1. LAMISIL [Suspect]
     Indication: NAIL TINEA
     Dosage: 250 MG, QD, ORAL
     Route: 048
     Dates: start: 20060801, end: 20060901
  2. LOTREL [Concomitant]
  3. NEXIUM [Concomitant]

REACTIONS (2)
  - ADVERSE DRUG REACTION [None]
  - RASH GENERALISED [None]
